FAERS Safety Report 8244939-8 (Version None)
Quarter: 2012Q1

REPORT INFORMATION
  Report Type: 
  Country: None (occurrence: None)
  Receive Date: 20120329
  Receipt Date: 20110926
  Transmission Date: 20120608
  Serious: No
  Sender: FDA-Public Use
  Company Number: US-MYLANLABS-2011S1020248

PATIENT
  Age: 55 Year
  Sex: Female

DRUGS (4)
  1. OXYCODONE HCL [Concomitant]
     Indication: PAIN
  2. ZOFRAN [Concomitant]
     Indication: NAUSEA
  3. CHEMOTHERAPEUTICS [Concomitant]
  4. FENTANYL-100 [Suspect]
     Indication: NEOPLASM MALIGNANT
     Dosage: Q72H
     Route: 062
     Dates: start: 20110923

REACTIONS (2)
  - APPLICATION SITE ERYTHEMA [None]
  - APPLICATION SITE PAIN [None]
